FAERS Safety Report 5663195-8 (Version None)
Quarter: 2008Q1

REPORT INFORMATION
  Report Type: 
  Country: None (occurrence: None)
  Receive Date: 20080310
  Receipt Date: 20071231
  Transmission Date: 20080703
  Serious: Yes (Death)
  Sender: FDA-Public Use
  Company Number: 2008AL000071

PATIENT
  Age: 69 Year
  Sex: Female

DRUGS (7)
  1. CITALOPRAM HYDROBROMIDE [Suspect]
     Indication: MAJOR DEPRESSION
     Dosage: 40 MG; QD; PO
     Route: 048
     Dates: start: 20060601
  2. AMISULPRIDE [Concomitant]
  3. LISINOPRIL [Concomitant]
  4. SIMVASTATIN [Concomitant]
  5. BENDROFLUMETHIAZIDE [Concomitant]
  6. BISOPROLOL FUMARATE [Concomitant]
  7. LITHIUM CARBONATE [Concomitant]

REACTIONS (7)
  - BENIGN NEOPLASM OF THYROID GLAND [None]
  - CONTUSION [None]
  - EXCORIATION [None]
  - GASTROINTESTINAL DISORDER [None]
  - HYPERTENSIVE HEART DISEASE [None]
  - SPINAL OSTEOARTHRITIS [None]
  - VENTRICULAR ARRHYTHMIA [None]
